FAERS Safety Report 17837548 (Version 1)
Quarter: 2020Q2

REPORT INFORMATION
  Report Type: Other
  Country: US (occurrence: US)
  Receive Date: 20200529
  Receipt Date: 20200529
  Transmission Date: 20200714
  Serious: Yes (Hospitalization)
  Sender: FDA-Public Use
  Company Number: US-INTERCEPT-PM2020001151

PATIENT
  Sex: Female
  Weight: 90.25 kg

DRUGS (9)
  1. ADVAIR HFA [Concomitant]
     Active Substance: FLUTICASONE PROPIONATE\SALMETEROL XINAFOATE
     Dosage: 100-50 MCG
  2. PROVENTIL [Concomitant]
     Active Substance: ALBUTEROL
     Dosage: 90 MCG
  3. OCALIVA [Suspect]
     Active Substance: OBETICHOLIC ACID
     Dosage: 5 MG, 3X/WK
     Route: 048
  4. OCALIVA [Suspect]
     Active Substance: OBETICHOLIC ACID
     Indication: PRIMARY BILIARY CHOLANGITIS
     Dosage: 5 MG, QD
     Route: 048
     Dates: start: 20170614
  5. OCALIVA [Suspect]
     Active Substance: OBETICHOLIC ACID
     Dosage: 5 MG, QW
     Route: 048
     Dates: start: 201803
  6. ULTRAM [Concomitant]
     Active Substance: TRAMADOL HYDROCHLORIDE
     Dosage: 50 MG, UNK
  7. VITAMIN D2 [Concomitant]
     Active Substance: ERGOCALCIFEROL
     Dosage: 2000 IU, UNK
  8. SYNTHROID [Concomitant]
     Active Substance: LEVOTHYROXINE SODIUM
     Dosage: 100 MCG
  9. FLONASE ALLERGY RELIEF [Concomitant]
     Active Substance: FLUTICASONE PROPIONATE

REACTIONS (2)
  - Off label use [Recovered/Resolved]
  - Liver disorder [Unknown]
